FAERS Safety Report 16942748 (Version 1)
Quarter: 2019Q4

REPORT INFORMATION
  Report Type: Spontaneous
  Country: US (occurrence: US)
  Receive Date: 20191021
  Receipt Date: 20191021
  Transmission Date: 20200122
  Serious: No
  Sender: FDA-Public Use
  Company Number: US-IBSA PHARMA-TIR-2019-0519

PATIENT
  Age: 48 Year
  Sex: Female

DRUGS (5)
  1. TIROSINT [Suspect]
     Active Substance: LEVOTHYROXINE SODIUM
     Indication: THYROIDECTOMY
     Dosage: 137MCG DAILY
     Route: 048
     Dates: start: 201808, end: 20190430
  2. SEROQUEL [Concomitant]
     Active Substance: QUETIAPINE FUMARATE
     Indication: PRODUCT USED FOR UNKNOWN INDICATION
     Dates: end: 20190410
  3. TIROSINT [Suspect]
     Active Substance: LEVOTHYROXINE SODIUM
     Dosage: 137MCG DAILY AND 2 137MCG CAPSULES ON SUNDAYS
     Route: 048
     Dates: start: 20190430
  4. OLANZAPINE. [Suspect]
     Active Substance: OLANZAPINE
     Indication: PRODUCT USED FOR UNKNOWN INDICATION
     Dosage: 2.5MG DAILY IN THE EVENING
     Dates: start: 20190410
  5. LAMOTRIGINE. [Suspect]
     Active Substance: LAMOTRIGINE
     Indication: PRODUCT USED FOR UNKNOWN INDICATION
     Dosage: 25MG TWICE DAILY IF NEEDED
     Dates: start: 20190410

REACTIONS (5)
  - Hypothyroidism [Not Recovered/Not Resolved]
  - Blood thyroid stimulating hormone increased [Unknown]
  - Tri-iodothyronine decreased [Unknown]
  - Drug level below therapeutic [Unknown]
  - Thyroxine decreased [Unknown]

NARRATIVE: CASE EVENT DATE: 201904
